FAERS Safety Report 15759923 (Version 1)
Quarter: 2018Q4

REPORT INFORMATION
  Report Type: Spontaneous
  Country: US (occurrence: US)
  Receive Date: 20181218
  Receipt Date: 20181218
  Transmission Date: 20190205
  Serious: No
  Sender: FDA-Public Use
  Company Number: None

PATIENT

DRUGS (1)
  1. ATORVASTATIN CALCIUM. [Suspect]
     Active Substance: ATORVASTATIN CALCIUM

REACTIONS (6)
  - Therapy cessation [None]
  - Rhabdomyolysis [None]
  - Acute kidney injury [None]
  - Alcohol withdrawal syndrome [None]
  - Fall [None]
  - Diabetic ketoacidosis [None]
